FAERS Safety Report 8005352-1 (Version None)
Quarter: 2011Q4

REPORT INFORMATION
  Report Type: 
  Country: None (occurrence: None)
  Receive Date: 20111223
  Receipt Date: 20111214
  Transmission Date: 20120403
  Serious: Yes (Life-Threatening)
  Sender: FDA-Public Use
  Company Number: FR-ROCHE-1022189

PATIENT
  Age: 50 Year
  Sex: Female

DRUGS (15)
  1. VFEND [Suspect]
     Indication: INFECTION
     Dates: start: 20111024
  2. PREDNISONE TAB [Concomitant]
  3. CYCLOSPORINE [Suspect]
     Dates: start: 20111116
  4. UMULINE [Concomitant]
  5. ACETAMINOPHEN [Concomitant]
  6. EPREX [Suspect]
     Indication: ANAEMIA
     Dates: start: 20111024
  7. NEXIUM [Concomitant]
  8. BRICANYL [Concomitant]
  9. VALACYCLOVIR HYDROCHLORIDE [Concomitant]
  10. FOLINORAL [Concomitant]
  11. PROGRAF [Suspect]
     Indication: PRODUCT USED FOR UNKNOWN INDICATION
     Dates: start: 20111107, end: 20111116
  12. CYCLOSPORINE [Suspect]
     Indication: IMMUNOSUPPRESSANT DRUG THERAPY
     Dates: start: 20111024, end: 20111109
  13. LASIX [Concomitant]
  14. MYCOPHENOLATE MOFETIL (CELLCEPT) [Suspect]
     Indication: IMMUNOSUPPRESSANT DRUG THERAPY
     Dates: start: 20111024
  15. INVANZ [Suspect]
     Indication: INFECTION
     Dates: start: 20111110, end: 20111114

REACTIONS (1)
  - PARTIAL SEIZURES [None]
